FAERS Safety Report 12338229 (Version 1)
Quarter: 2016Q2

REPORT INFORMATION
  Report Type: Spontaneous
  Country: US (occurrence: US)
  Receive Date: 20160505
  Receipt Date: 20160505
  Transmission Date: 20160815
  Serious: No
  Sender: FDA-Public Use
  Company Number: US-BEH-2015050014

PATIENT
  Age: 13 Year
  Sex: Female
  Weight: 54.4 kg

DRUGS (1)
  1. STIMATE [Suspect]
     Active Substance: DESMOPRESSIN ACETATE
     Indication: PROPHYLAXIS
     Dosage: 1 SPRAY; DAY 1 OF MENSTRUAL CYCLE
     Route: 045
     Dates: start: 20150224, end: 20150224

REACTIONS (3)
  - Fatigue [Recovered/Resolved]
  - Abdominal pain upper [Recovered/Resolved]
  - Headache [Recovered/Resolved]

NARRATIVE: CASE EVENT DATE: 20150224
